FAERS Safety Report 7738396-5 (Version None)
Quarter: 2011Q3

REPORT INFORMATION
  Report Type: 
  Country: None (occurrence: None)
  Receive Date: 20110908
  Receipt Date: 20110824
  Transmission Date: 20111222
  Serious: Yes (Hospitalization, Other)
  Sender: FDA-Public Use
  Company Number: PL-GENENTECH-308056

PATIENT
  Sex: Female
  Weight: 101 kg

DRUGS (5)
  1. RITUXIMAB [Suspect]
     Indication: CHRONIC LYMPHOCYTIC LEUKAEMIA
     Dosage: 1075 MG, 1/MONTH
     Route: 042
     Dates: start: 20091217
  2. ACYCLOVIR [Concomitant]
     Indication: PRODUCT USED FOR UNKNOWN INDICATION
     Dosage: UNK
     Dates: start: 20091217
  3. CYCLOPHOSPHAMIDE [Suspect]
     Indication: CHRONIC LYMPHOCYTIC LEUKAEMIA
     Dosage: 537 MG, 3/MONTH
     Route: 042
     Dates: start: 20091218
  4. CLADRIBINE [Suspect]
     Indication: CHRONIC LYMPHOCYTIC LEUKAEMIA
     Dosage: 12 MG, 3/MONTH
     Route: 042
     Dates: start: 20091218
  5. SULPHAMETHOXAZOLE/TRIMETHOPRIM [Concomitant]
     Indication: PRODUCT USED FOR UNKNOWN INDICATION
     Dosage: UNK
     Dates: start: 20091217

REACTIONS (2)
  - LIP AND/OR ORAL CAVITY CANCER [None]
  - SKIN ULCER [None]
